FAERS Safety Report 15637815 (Version 1)
Quarter: 2018Q4

REPORT INFORMATION
  Report Type: Spontaneous
  Country: US (occurrence: US)
  Receive Date: 20181120
  Receipt Date: 20181120
  Transmission Date: 20190205
  Serious: No
  Sender: FDA-Public Use
  Company Number: US-JNJFOC-20180540278

PATIENT
  Sex: Male

DRUGS (11)
  1. GLUCOSAMINE [Concomitant]
     Active Substance: GLUCOSAMINE
  2. POTASSIUM [Concomitant]
     Active Substance: POTASSIUM
  3. FISH OIL [Concomitant]
     Active Substance: FISH OIL
  4. RANEXA [Concomitant]
     Active Substance: RANOLAZINE
  5. ZANTAC [Concomitant]
     Active Substance: RANITIDINE HYDROCHLORIDE
  6. IMBRUVICA [Suspect]
     Active Substance: IBRUTINIB
     Indication: B-CELL SMALL LYMPHOCYTIC LYMPHOMA
     Route: 065
     Dates: start: 201804
  7. OMEPRAZOLE. [Concomitant]
     Active Substance: OMEPRAZOLE
  8. WARFARIN [Concomitant]
     Active Substance: WARFARIN
  9. DEXAMETHASONE. [Concomitant]
     Active Substance: DEXAMETHASONE
  10. MULTAQ [Concomitant]
     Active Substance: DRONEDARONE
  11. IMBRUVICA [Suspect]
     Active Substance: IBRUTINIB
     Indication: B-CELL SMALL LYMPHOCYTIC LYMPHOMA
     Route: 065
     Dates: end: 20180521

REACTIONS (1)
  - Drug interaction [Unknown]
